FAERS Safety Report 8295442-0 (Version None)
Quarter: 2012Q2

REPORT INFORMATION
  Report Type: 
  Country: None (occurrence: None)
  Receive Date: 20120418
  Receipt Date: 20120411
  Transmission Date: 20120825
  Serious: Yes (Hospitalization, Other)
  Sender: FDA-Public Use
  Company Number: US-ELI_LILLY_AND_COMPANY-US201103008757

PATIENT
  Sex: Female

DRUGS (7)
  1. LYRICA [Concomitant]
     Indication: NEUROPATHY PERIPHERAL
  2. FORTEO [Suspect]
     Dosage: 20 UG, QD
  3. CYMBALTA [Concomitant]
     Indication: NEUROPATHY PERIPHERAL
  4. FORTEO [Suspect]
     Indication: OSTEOPOROSIS
     Dosage: 20 UG, QD
  5. FORTEO [Suspect]
     Dosage: 20 UG, QD
  6. FORTEO [Suspect]
     Dosage: 20 UG, QD
  7. OMEPRAZOLE [Concomitant]
     Indication: GASTROOESOPHAGEAL REFLUX DISEASE
     Dosage: UNK, QD

REACTIONS (2)
  - FRACTURE [None]
  - PROSTHESIS IMPLANTATION [None]
